FAERS Safety Report 13614381 (Version 1)
Quarter: 2017Q2

REPORT INFORMATION
  Report Type: Report from Study
  Country: US (occurrence: US)
  Receive Date: 20170606
  Receipt Date: 20170606
  Transmission Date: 20170830
  Serious: Yes (Other)
  Sender: FDA-Public Use
  Company Number: US-MALLINCKRODT-T201700177

PATIENT
  Age: 50 Year
  Sex: Female

DRUGS (3)
  1. REPOSITORY CORTICOTROPIN INJECTION [Suspect]
     Active Substance: CORTICOTROPIN
     Dosage: 80 UNITS / 1 ML, 1 TIME WEEKLY, WEDNESDAY
     Route: 058
     Dates: start: 20170118
  2. REPOSITORY CORTICOTROPIN INJECTION [Suspect]
     Active Substance: CORTICOTROPIN
     Dosage: 80 UNITS / 1 ML, 2 TIMES PER WEEK, TUESDAY/FRIDAY STARTING 1/31
     Route: 058
     Dates: start: 20161028, end: 20170421
  3. REPOSITORY CORTICOTROPIN INJECTION [Suspect]
     Active Substance: CORTICOTROPIN
     Indication: SARCOIDOSIS
     Dosage: 80 UNITS / 1 ML, 2 TIMES PER WEEK, TUESDAY/FRIDAY STARTING 1/31
     Route: 058
     Dates: start: 20170131

REACTIONS (12)
  - Alopecia [Unknown]
  - Hypertension [Recovering/Resolving]
  - Liver function test abnormal [Not Recovered/Not Resolved]
  - Rash pruritic [Recovering/Resolving]
  - Ocular discomfort [Not Recovered/Not Resolved]
  - Renal impairment [Not Recovered/Not Resolved]
  - Visual impairment [Unknown]
  - Uveitis [Not Recovered/Not Resolved]
  - Skin lesion [Recovering/Resolving]
  - Headache [Unknown]
  - Eye pain [Unknown]
  - Drug dose omission [Unknown]

NARRATIVE: CASE EVENT DATE: 20170113
